FAERS Safety Report 8613282-7 (Version None)
Quarter: 2012Q3

REPORT INFORMATION
  Report Type: 
  Country: None (occurrence: None)
  Receive Date: 20120822
  Receipt Date: 20120803
  Transmission Date: 20120928
  Serious: Yes (Life-Threatening, Other)
  Sender: FDA-Public Use
  Company Number: JP-009507513-1208JPN003807

PATIENT

DRUGS (2)
  1. BRIDION INTRAVENOUS 500MG [Suspect]
     Indication: HYPOTONIA
     Route: 042
     Dates: start: 20120801, end: 20120801
  2. FLURBIPROFEN [Concomitant]
     Route: 042
     Dates: start: 20120801, end: 20120801

REACTIONS (2)
  - CARDIAC ARREST [None]
  - BRADYCARDIA [None]
